FAERS Safety Report 21033522 (Version 2)
Quarter: 2022Q4

REPORT INFORMATION
  Report Type: Spontaneous
  Country: FR (occurrence: FR)
  Receive Date: 20220701
  Receipt Date: 20221128
  Transmission Date: 20230112
  Serious: Yes (Life-Threatening, Other)
  Sender: FDA-Public Use
  Company Number: None

PATIENT
  Age: 59 Year
  Sex: Male

DRUGS (12)
  1. TRASTUZUMAB [Suspect]
     Active Substance: TRASTUZUMAB
     Indication: Adenocarcinoma gastric
     Dosage: FREQUENCY: CYCLICAL
     Route: 042
     Dates: start: 20220105, end: 20220216
  2. LANSOPRAZOLE [Suspect]
     Active Substance: LANSOPRAZOLE
     Indication: Abdominal pain upper
     Route: 048
     Dates: start: 202112, end: 20220305
  3. CAPECITABINE [Suspect]
     Active Substance: CAPECITABINE
     Indication: Adenocarcinoma gastric
     Route: 048
     Dates: start: 20220106, end: 20220302
  4. CAPECITABINE [Suspect]
     Active Substance: CAPECITABINE
     Route: 042
     Dates: start: 20220106, end: 20220302
  5. PREDNISONE [Suspect]
     Active Substance: PREDNISONE
     Indication: Adenocarcinoma gastric
     Route: 048
     Dates: start: 202201
  6. OXALIPLATIN [Suspect]
     Active Substance: OXALIPLATIN
     Indication: Adenocarcinoma gastric
     Dosage: FREQUENCY: CYCLICAL
     Route: 042
     Dates: start: 20211209, end: 20220216
  7. OXALIPLATIN [Suspect]
     Active Substance: OXALIPLATIN
     Route: 048
     Dates: start: 20220105, end: 20220226
  8. CHLORPROMAZINE [Suspect]
     Active Substance: CHLORPROMAZINE
     Indication: Hiccups
     Dosage: ORAL SOLUTION IN DROPS
     Route: 048
     Dates: start: 202112, end: 20220305
  9. OXAZEPAM [Concomitant]
     Active Substance: OXAZEPAM
     Indication: Product used for unknown indication
     Route: 048
     Dates: start: 202201, end: 20220305
  10. FOLIC ACID [Concomitant]
     Active Substance: FOLIC ACID
     Indication: Product used for unknown indication
     Route: 048
  11. CALCIUM PHOSPHATE, DIBASIC, ANHYDROUS\MAGNESIUM GLYCEROPHOSPHATE\PHOSP [Concomitant]
     Active Substance: CALCIUM PHOSPHATE, DIBASIC, ANHYDROUS\MAGNESIUM GLYCEROPHOSPHATE\PHOSPHORIC ACID\SODIUM PHOSPHATE, D
     Indication: Product used for unknown indication
     Dosage: ORAL SOLUTION IN DROPS, ORAL DROPS, SOLUTION
     Route: 048
     Dates: start: 202201, end: 20220305
  12. KARDEGIC [Concomitant]
     Active Substance: ASPIRIN DL-LYSINE
     Indication: Product used for unknown indication
     Dosage: POWDER FOR ORAL SOLUTION IN SACHET, POWDER AND SOLVENT FOR ORAL SOLUTION
     Route: 065
     Dates: start: 202012

REACTIONS (1)
  - Status epilepticus [Recovered/Resolved]

NARRATIVE: CASE EVENT DATE: 20220305
